FAERS Safety Report 15034874 (Version 2)
Quarter: 2018Q2

REPORT INFORMATION
  Report Type: Report from Study
  Country: CA (occurrence: CA)
  Receive Date: 20180620
  Receipt Date: 20180628
  Transmission Date: 20180711
  Serious: Yes (Other)
  Sender: FDA-Public Use
  Company Number: CA-ROCHE-1919526

PATIENT
  Age: 54 Year
  Sex: Female

DRUGS (9)
  1. METHYLPREDNISOLONE. [Concomitant]
     Active Substance: METHYLPREDNISOLONE
     Indication: PREMEDICATION
     Route: 042
     Dates: start: 20160519
  2. PREDNISONE. [Concomitant]
     Active Substance: PREDNISONE
  3. MORPHINE [Concomitant]
     Active Substance: MORPHINE
  4. DIPHENHYDRAMINE HCL [Concomitant]
     Active Substance: DIPHENHYDRAMINE HYDROCHLORIDE
     Indication: PREMEDICATION
     Route: 048
     Dates: start: 20160519
  5. ADALAT [Suspect]
     Active Substance: NIFEDIPINE
     Route: 065
     Dates: start: 20171030
  6. RITUXAN [Suspect]
     Active Substance: RITUXIMAB
     Indication: RHEUMATOID ARTHRITIS
     Dosage: DAY 1, 15, LAST RITUXAN INFUSION RECEIVED ON 20/OCT/2016, 10/APR/2017, 06/DEC/2017
     Route: 042
     Dates: start: 20160519
  7. ADALAT [Suspect]
     Active Substance: NIFEDIPINE
     Indication: HYPERTENSION
     Dosage: 30 ER TAB
     Route: 065
     Dates: start: 201706
  8. METOPROLOL. [Suspect]
     Active Substance: METOPROLOL
     Indication: HEART RATE INCREASED
     Route: 065
     Dates: start: 2018
  9. ACETAMINOPHEN. [Concomitant]
     Active Substance: ACETAMINOPHEN
     Indication: PREMEDICATION
     Route: 048
     Dates: start: 20160519

REACTIONS (11)
  - Skin ulcer [Not Recovered/Not Resolved]
  - Stress [Recovering/Resolving]
  - Heart rate increased [Unknown]
  - Hypotension [Unknown]
  - Rheumatoid arthritis [Not Recovered/Not Resolved]
  - Insomnia [Recovering/Resolving]
  - Headache [Not Recovered/Not Resolved]
  - Vasculitis [Not Recovered/Not Resolved]
  - Blood pressure increased [Not Recovered/Not Resolved]
  - Restlessness [Not Recovered/Not Resolved]
  - Depression [Not Recovered/Not Resolved]

NARRATIVE: CASE EVENT DATE: 20170410
